FAERS Safety Report 4278361-6 (Version None)
Quarter: 2004Q1

REPORT INFORMATION
  Report Type: 
  Country: None (occurrence: None)
  Receive Date: 20040121
  Receipt Date: 20040121
  Transmission Date: 20041129
  Serious: Yes (Life-Threatening, Hospitalization)
  Sender: FDA-Public Use
  Company Number: None

PATIENT
  Age: 33 Year
  Sex: Female
  Weight: 85.2762 kg

DRUGS (3)
  1. CYTARABINE [Suspect]
     Dosage: 200MG/M2/DAY IV
     Route: 042
     Dates: start: 20031205, end: 20031211
  2. DAUNORUBICIN HCL [Suspect]
     Dosage: 50MG/M2/DAY
     Dates: start: 20031205, end: 20031208
  3. TRETINOIN [Suspect]
     Dosage: 45MG/M2/DAY PO
     Route: 048
     Dates: start: 20031203

REACTIONS (10)
  - ABDOMINAL DISCOMFORT [None]
  - ABDOMINAL PAIN [None]
  - COMPUTERISED TOMOGRAM ABDOMEN ABNORMAL [None]
  - DIARRHOEA HAEMORRHAGIC [None]
  - ENTEROCOLITIS HAEMORRHAGIC [None]
  - GASTROINTESTINAL DISORDER [None]
  - NAUSEA [None]
  - NEUTROPENIA [None]
  - PYREXIA [None]
  - THROMBOCYTOPENIA [None]
